FAERS Safety Report 9408736 (Version 1)
Quarter: 2013Q3

REPORT INFORMATION
  Report Type: Spontaneous
  Country: US (occurrence: US)
  Receive Date: 20130718
  Receipt Date: 20130718
  Transmission Date: 20140515
  Serious: No
  Sender: FDA-Public Use
  Company Number: US-009507513-1307USA006175

PATIENT
  Sex: Female

DRUGS (6)
  1. RIBAVIRIN [Suspect]
     Indication: HEPATITIS C
     Dosage: UNK
     Route: 048
     Dates: end: 20130610
  2. VICTRELIS [Suspect]
     Indication: HEPATITIS C
     Dosage: FOUR CAPSULES EVERY EIGHT HOURS
     Route: 048
     Dates: start: 2013
  3. PEGASYS [Suspect]
     Indication: HEPATITIS C
     Dosage: UNK
  4. LIPITOR [Concomitant]
  5. LISINOPRIL [Concomitant]
  6. GLIPIZIDE (+) METFORMIN HYDROCHLORIDE [Concomitant]

REACTIONS (1)
  - Rash [Unknown]
